FAERS Safety Report 6185786-0 (Version None)
Quarter: 2009Q2

REPORT INFORMATION
  Report Type: 
  Country: None (occurrence: None)
  Receive Date: 20090511
  Receipt Date: 20090501
  Transmission Date: 20091009
  Serious: Yes (Hospitalization, Other)
  Sender: FDA-Public Use
  Company Number: A0695879A

PATIENT
  Age: 58 Year
  Sex: Male
  Weight: 111.4 kg

DRUGS (6)
  1. AVANDIA [Suspect]
     Dosage: 8MG PER DAY
     Dates: end: 20070401
  2. GLUCOPHAGE [Concomitant]
     Dates: start: 20000101, end: 20050101
  3. METFORMIN HCL [Concomitant]
     Dates: start: 20050101
  4. FORTAMET [Concomitant]
     Dates: start: 20050101
  5. PRECOSE [Concomitant]
     Dates: start: 20020101, end: 20050101
  6. DIABETA [Concomitant]
     Dates: start: 20000101

REACTIONS (14)
  - ACTIVITIES OF DAILY LIVING IMPAIRED [None]
  - ARTERIOSCLEROSIS [None]
  - ASTHENIA [None]
  - CARDIAC FAILURE CONGESTIVE [None]
  - CARDIOVASCULAR DISORDER [None]
  - CEREBROVASCULAR ACCIDENT [None]
  - CORONARY ARTERY DISEASE [None]
  - FEAR OF DEATH [None]
  - HEART INJURY [None]
  - LIFE EXPECTANCY SHORTENED [None]
  - MYOCARDIAL INFARCTION [None]
  - PAIN [None]
  - QUALITY OF LIFE DECREASED [None]
  - VISION BLURRED [None]
